FAERS Safety Report 24913966 (Version 1)
Quarter: 2025Q1

REPORT INFORMATION
  Report Type: Other
  Country: None (occurrence: None)
  Receive Date: 20250202
  Receipt Date: 20250202
  Transmission Date: 20250409
  Serious: Yes (Hospitalization, Other)
  Sender: PRASCO
  Company Number: Prasco Laboratories-PRAS20250036

PATIENT

DRUGS (3)
  1. DEXAMETHASONE [Suspect]
     Active Substance: DEXAMETHASONE
     Indication: Cutaneous T-cell lymphoma refractory
     Route: 042
  2. DEXAMETHASONE [Suspect]
     Active Substance: DEXAMETHASONE
     Route: 048
  3. BORTEZOMIB [Suspect]
     Active Substance: BORTEZOMIB
     Indication: Cutaneous T-cell lymphoma refractory
     Route: 058

REACTIONS (1)
  - Pneumonia [Unknown]
